FAERS Safety Report 5658166-1 (Version None)
Quarter: 2008Q1

REPORT INFORMATION
  Report Type: 
  Country: None (occurrence: None)
  Receive Date: 20080310
  Receipt Date: 20070104
  Transmission Date: 20080703
  Serious: No
  Sender: FDA-Public Use
  Company Number: US-BAYER-200710048BCC

PATIENT
  Age: 92 Year
  Sex: Female
  Weight: 67 kg

DRUGS (4)
  1. ALEVE [Suspect]
     Indication: ARTHRALGIA
     Dosage: UNIT DOSE: 220 MG
     Route: 048
     Dates: start: 20070104
  2. HIGH BLOOD PRESSURE MEDICATION [Concomitant]
  3. THYROID TAB [Concomitant]
  4. ECOTRIN [Concomitant]
     Indication: PAIN

REACTIONS (1)
  - ARTHRALGIA [None]
